FAERS Safety Report 7035616-X (Version None)
Quarter: 2010Q4

REPORT INFORMATION
  Report Type: 
  Country: None (occurrence: None)
  Receive Date: 20101008
  Receipt Date: 20100927
  Transmission Date: 20110411
  Serious: Yes (Other)
  Sender: FDA-Public Use
  Company Number: US-PFIZER INC-2010122455

PATIENT
  Sex: Male

DRUGS (1)
  1. DILANTIN-125 [Suspect]

REACTIONS (2)
  - COELIAC DISEASE [None]
  - DRUG INEFFECTIVE [None]
